FAERS Safety Report 5087022-5 (Version None)
Quarter: 2006Q3

REPORT INFORMATION
  Report Type: 
  Country: None (occurrence: None)
  Receive Date: 20060818
  Receipt Date: 20060807
  Transmission Date: 20061208
  Serious: Yes (Other)
  Sender: FDA-Public Use
  Company Number: 2006020208

PATIENT
  Age: 38 Year
  Sex: Female
  Weight: 79.3795 kg

DRUGS (4)
  1. LYRICA [Suspect]
     Indication: NEUROPATHY
     Dosage: 300 MG (150 MG, 2 IN 1 D), ORAL
     Route: 048
     Dates: start: 20051201
  2. NEURONTIN [Suspect]
     Indication: NEURALGIA
  3. ORAL CONTRACEPTIVE NOS [Concomitant]
  4. VITAMINS [Concomitant]

REACTIONS (9)
  - BREAST CANCER FEMALE [None]
  - CONDITION AGGRAVATED [None]
  - DRUG EFFECT DECREASED [None]
  - HOT FLUSH [None]
  - HYPERMETROPIA [None]
  - MUSCLE STRAIN [None]
  - NEUROPATHY PERIPHERAL [None]
  - OEDEMA PERIPHERAL [None]
  - SOMNOLENCE [None]
